FAERS Safety Report 25034342 (Version 1)
Quarter: 2025Q1

REPORT INFORMATION
  Report Type: Spontaneous
  Country: IT (occurrence: IT)
  Receive Date: 20250304
  Receipt Date: 20250304
  Transmission Date: 20250408
  Serious: Yes (Life-Threatening, Hospitalization, Other)
  Sender: COLLEGIUM PHARMACEUTICAL
  Company Number: None

PATIENT
  Age: 64 Year
  Sex: Female

DRUGS (6)
  1. NUCYNTA [Suspect]
     Active Substance: TAPENTADOL HYDROCHLORIDE
     Indication: Product used for unknown indication
     Route: 065
     Dates: start: 20230131, end: 20230131
  2. EN [Suspect]
     Active Substance: DELORAZEPAM
     Indication: Product used for unknown indication
     Route: 065
     Dates: start: 20230131, end: 20230131
  3. CLOPIDOGREL [Concomitant]
     Active Substance: CLOPIDOGREL BISULFATE
     Indication: Product used for unknown indication
     Route: 065
  4. CLOPIDOGREL [Concomitant]
     Active Substance: CLOPIDOGREL BISULFATE
  5. DEURSIL [Concomitant]
     Active Substance: URSODIOL
     Indication: Product used for unknown indication
     Route: 065
  6. DEURSIL [Concomitant]
     Active Substance: URSODIOL

REACTIONS (5)
  - Intentional self-injury [Recovered/Resolved]
  - Drug abuse [Recovered/Resolved]
  - Hypoxia [Recovered/Resolved]
  - Sopor [Recovered/Resolved]
  - Respiratory acidosis [Recovered/Resolved]

NARRATIVE: CASE EVENT DATE: 20230131
